FAERS Safety Report 6198199-2 (Version None)
Quarter: 2009Q2

REPORT INFORMATION
  Report Type: 
  Country: None (occurrence: None)
  Receive Date: 20090521
  Receipt Date: 20090513
  Transmission Date: 20091009
  Serious: Yes (Hospitalization, Other)
  Sender: FDA-Public Use
  Company Number: US-MERCK-0802USA02038

PATIENT
  Age: 51 Year
  Sex: Female
  Weight: 57 kg

DRUGS (4)
  1. FOSAMAX [Suspect]
     Indication: OSTEOPOROSIS
     Route: 048
     Dates: start: 19990401, end: 20060901
  2. FOSAMAX [Suspect]
     Route: 048
     Dates: end: 20070502
  3. FOSAMAX [Suspect]
     Route: 048
     Dates: start: 20010507
  4. ACYCLOVIR [Concomitant]
     Indication: ORAL HERPES
     Route: 065

REACTIONS (19)
  - ANXIETY [None]
  - CHRONIC OBSTRUCTIVE PULMONARY DISEASE [None]
  - FUNGAL INFECTION [None]
  - HORMONE LEVEL ABNORMAL [None]
  - INFECTION [None]
  - JAW DISORDER [None]
  - NASOPHARYNGITIS [None]
  - ORAL INFECTION [None]
  - OSTEONECROSIS [None]
  - OVARIAN DISORDER [None]
  - POSTMENOPAUSAL HAEMORRHAGE [None]
  - PROCTALGIA [None]
  - RESORPTION BONE INCREASED [None]
  - STRESS URINARY INCONTINENCE [None]
  - TOOTH LOSS [None]
  - TREMOR [None]
  - UTERINE DISORDER [None]
  - UTERINE LEIOMYOMA [None]
  - UTERINE STENOSIS [None]
